FAERS Safety Report 18135507 (Version 1)
Quarter: 2020Q3

REPORT INFORMATION
  Report Type: Spontaneous
  Country: US (occurrence: US)
  Receive Date: 20200810
  Receipt Date: 20200810
  Transmission Date: 20201103
  Serious: Yes (Hospitalization, Other)
  Sender: FDA-Public Use
  Company Number: None

PATIENT
  Age: 81 Year
  Sex: Female

DRUGS (13)
  1. MONTELUKAST [Concomitant]
     Active Substance: MONTELUKAST SODIUM
  2. ACARBOSE. [Concomitant]
     Active Substance: ACARBOSE
  3. TRESIBA [Concomitant]
     Active Substance: INSULIN DEGLUDEC
  4. OMEPRAZOLE. [Concomitant]
     Active Substance: OMEPRAZOLE
  5. METRONIDAZOLE. [Concomitant]
     Active Substance: METRONIDAZOLE
  6. METOPROL TAR [Concomitant]
  7. OCTREOTIDE. [Suspect]
     Active Substance: OCTREOTIDE
     Indication: IRRITABLE BOWEL SYNDROME
     Route: 058
     Dates: start: 20180123
  8. DICYCLOMINE [Concomitant]
     Active Substance: DICYCLOMINE HYDROCHLORIDE
  9. ESCITALOPRAM [Concomitant]
     Active Substance: ESCITALOPRAM OXALATE
  10. GABAPENTIN. [Concomitant]
     Active Substance: GABAPENTIN
  11. CARISOPRODOL. [Concomitant]
     Active Substance: CARISOPRODOL
  12. ELIQUIS [Concomitant]
     Active Substance: APIXABAN
  13. SPIRONOLACTONE. [Concomitant]
     Active Substance: SPIRONOLACTONE

REACTIONS (2)
  - COVID-19 [None]
  - Therapy interrupted [None]

NARRATIVE: CASE EVENT DATE: 20200724
